FAERS Safety Report 6889380-5 (Version None)
Quarter: 2010Q3

REPORT INFORMATION
  Report Type: 
  Country: None (occurrence: None)
  Receive Date: 20100730
  Receipt Date: 20080225
  Transmission Date: 20110219
  Serious: Yes (Other)
  Sender: FDA-Public Use
  Company Number: US-PFIZER INC-2007104609

PATIENT
  Sex: Female
  Weight: 78.5 kg

DRUGS (5)
  1. LIPITOR [Suspect]
     Indication: HYPERLIPIDAEMIA
     Dates: start: 20070101, end: 20070920
  2. LEVOXYL [Concomitant]
     Dosage: 125,DAILY
  3. FOSAMAX [Concomitant]
     Dosage: 70,WEEKLY
     Dates: start: 20070501, end: 20071226
  4. LEXAPRO [Concomitant]
     Dosage: 10,DAILY
     Dates: start: 20070701
  5. BONIVA [Concomitant]
     Dosage: MONTHLY

REACTIONS (6)
  - BLOOD CHOLESTEROL INCREASED [None]
  - BLOOD TRIGLYCERIDES INCREASED [None]
  - CONJUNCTIVAL HAEMORRHAGE [None]
  - DEPRESSION [None]
  - LOW DENSITY LIPOPROTEIN INCREASED [None]
  - TOTAL CHOLESTEROL/HDL RATIO DECREASED [None]
